FAERS Safety Report 20698156 (Version 1)
Quarter: 2022Q2

REPORT INFORMATION
  Report Type: Spontaneous
  Country: CH (occurrence: CH)
  Receive Date: 20220412
  Receipt Date: 20220412
  Transmission Date: 20220721
  Serious: Yes (Hospitalization)
  Sender: FDA-Public Use
  Company Number: CH-SA-SAC20220406001870

PATIENT
  Age: 51 Year
  Sex: Male

DRUGS (7)
  1. DUPIXENT [Suspect]
     Active Substance: DUPILUMAB
     Indication: Asthma
     Dosage: UNK
     Dates: start: 202111
  2. SYMBICORT [Concomitant]
     Active Substance: BUDESONIDE\FORMOTEROL FUMARATE DIHYDRATE
     Indication: Asthma
     Dosage: UNK
  3. ALVESCO [Concomitant]
     Active Substance: CICLESONIDE
     Dosage: 160 UG (8 STROKES IN THE MORNING)
  4. SPIRIVA [Concomitant]
     Active Substance: TIOTROPIUM BROMIDE MONOHYDRATE
     Dosage: UNK
  5. BUDESONIDE [Concomitant]
     Active Substance: BUDESONIDE
     Dosage: 100 MG, QD
     Dates: start: 20220326, end: 20220328
  6. BUDESONIDE [Concomitant]
     Active Substance: BUDESONIDE
     Dosage: 80 MG
     Dates: start: 20220329, end: 20220331
  7. BUDESONIDE [Concomitant]
     Active Substance: BUDESONIDE
     Dosage: 60 MG, QD
     Dates: start: 20220401, end: 20220403

REACTIONS (8)
  - Asthma [Unknown]
  - Drug ineffective [Unknown]
  - Obstructive airways disorder [Not Recovered/Not Resolved]
  - Laryngeal obstruction [Not Recovered/Not Resolved]
  - Snoring [Not Recovered/Not Resolved]
  - Upper airway resistance syndrome [Unknown]
  - Fractional exhaled nitric oxide increased [Unknown]
  - Interleukin level increased [Unknown]
